FAERS Safety Report 15632276 (Version 1)
Quarter: 2018Q4

REPORT INFORMATION
  Report Type: Spontaneous
  Country: US (occurrence: US)
  Receive Date: 20181119
  Receipt Date: 20181119
  Transmission Date: 20190205
  Serious: No
  Sender: FDA-Public Use
  Company Number: US-ARALEZ PHARMACEUTICALS R+D INC.-2018-ARA-002857

PATIENT
  Sex: Female
  Weight: 70.3 kg

DRUGS (2)
  1. PRAVACOL [Concomitant]
     Active Substance: PRAVASTATIN SODIUM
     Dosage: UNK
  2. METOPROLOL SUCCINATE. [Suspect]
     Active Substance: METOPROLOL SUCCINATE
     Indication: PRODUCT USED FOR UNKNOWN INDICATION
     Dosage: 50 MG, QD
     Route: 048

REACTIONS (3)
  - Blood pressure inadequately controlled [Recovered/Resolved]
  - Product substitution issue [Recovered/Resolved]
  - Chest pain [Recovered/Resolved]
